FAERS Safety Report 7795709-6 (Version None)
Quarter: 2011Q4

REPORT INFORMATION
  Report Type: 
  Country: None (occurrence: None)
  Receive Date: 20111004
  Receipt Date: 20110923
  Transmission Date: 20120403
  Serious: Yes (Hospitalization, Other)
  Sender: FDA-Public Use
  Company Number: DE-ELI_LILLY_AND_COMPANY-DE201103005229

PATIENT
  Age: 84 Year
  Sex: Female

DRUGS (3)
  1. ERGOCALCIFEROL [Concomitant]
  2. FORTEO [Suspect]
     Indication: OSTEOPOROSIS
     Dosage: UNK UNK, QD
     Route: 058
     Dates: start: 20110112, end: 20110503
  3. CALCIUM CARBONATE [Concomitant]
     Dosage: 500 MG, UNK

REACTIONS (4)
  - PLEUROPERICARDITIS [None]
  - HEADACHE [None]
  - WEIGHT DECREASED [None]
  - PERICARDIAL EFFUSION [None]
